FAERS Safety Report 10977641 (Version 3)
Quarter: 2015Q3

REPORT INFORMATION
  Report Type: Spontaneous
  Country: JP (occurrence: JP)
  Receive Date: 20150402
  Receipt Date: 20150924
  Transmission Date: 20151125
  Serious: Yes (Hospitalization, Other)
  Sender: FDA-Public Use
  Company Number: JP-JNJFOC-20150323726

PATIENT
  Age: 70 Year
  Sex: Female

DRUGS (4)
  1. FOLIAMIN [Concomitant]
     Active Substance: FOLIC ACID
     Route: 048
     Dates: end: 20140507
  2. METHOTREXATE [Concomitant]
     Active Substance: METHOTREXATE
     Dosage: PER  WEEK
     Route: 048
     Dates: end: 20140507
  3. REMICADE [Suspect]
     Active Substance: INFLIXIMAB
     Indication: RHEUMATOID ARTHRITIS
     Dosage: 25 DAYS
     Route: 042
     Dates: start: 20100715
  4. REMICADE [Suspect]
     Active Substance: INFLIXIMAB
     Indication: RHEUMATOID ARTHRITIS
     Dosage: 1 DAY
     Route: 042
     Dates: start: 20140402, end: 20140402

REACTIONS (1)
  - Lupus-like syndrome [Recovering/Resolving]

NARRATIVE: CASE EVENT DATE: 20140507
